FAERS Safety Report 7917749-6 (Version None)
Quarter: 2011Q4

REPORT INFORMATION
  Report Type: 
  Country: None (occurrence: None)
  Receive Date: 20111116
  Receipt Date: 20111111
  Transmission Date: 20120403
  Serious: Yes (Other)
  Sender: FDA-Public Use
  Company Number: US-JNJFOC-20111105319

PATIENT
  Sex: Female
  Weight: 83.92 kg

DRUGS (6)
  1. AMBIEN [Concomitant]
     Indication: SLEEP DISORDER THERAPY
     Route: 048
     Dates: start: 20110301
  2. AMBIEN [Concomitant]
     Route: 048
     Dates: start: 20100101, end: 20110301
  3. PREDNISONE [Concomitant]
     Indication: RHEUMATOID ARTHRITIS
     Route: 048
     Dates: start: 20050101
  4. METHOTREXATE [Concomitant]
     Indication: RHEUMATOID ARTHRITIS
     Route: 048
     Dates: start: 20050101
  5. SIMPONI [Suspect]
     Indication: RHEUMATOID ARTHRITIS
     Route: 058
     Dates: start: 20060101
  6. LUNESTA [Concomitant]
     Indication: SLEEP DISORDER THERAPY
     Route: 048
     Dates: start: 20050101, end: 20100101

REACTIONS (9)
  - DRUG DOSE OMISSION [None]
  - SINUS DISORDER [None]
  - OESOPHAGEAL DISORDER [None]
  - PHARYNGITIS [None]
  - DEVICE FAILURE [None]
  - SEASONAL ALLERGY [None]
  - CHEST X-RAY ABNORMAL [None]
  - DYSPNOEA [None]
  - GASTROOESOPHAGEAL REFLUX DISEASE [None]
